FAERS Safety Report 4907613-9 (Version None)
Quarter: 2006Q1

REPORT INFORMATION
  Report Type: 
  Country: None (occurrence: None)
  Receive Date: 20060208
  Receipt Date: 20060201
  Transmission Date: 20060701
  Serious: Yes (Hospitalization)
  Sender: FDA-Public Use
  Company Number: HQWYE626402FEB06

PATIENT
  Age: 43 Year
  Sex: Female

DRUGS (14)
  1. RAPAMUNE [Suspect]
     Indication: PROPHYLAXIS AGAINST TRANSPLANT REJECTION
     Dosage: 9 MG 1X PER 1 DAY ORAL
     Route: 048
     Dates: start: 20051127
  2. ALLOPURINOL [Concomitant]
  3. SUMETROLIM              (SULFAMETHOXAZOLE/TRIMETHOPRIM) [Concomitant]
  4. VALGANCICLOVIR                (VALGANCICLOVIR) [Concomitant]
  5. FAMOTIDINE [Concomitant]
  6. FLUVASTATIN            (FLUVASTATIN) [Concomitant]
  7. PERINDOPRIL           (PERINDOPRIL) [Concomitant]
  8. BISOPROLOL          (BISOPROLOL) [Concomitant]
  9. RILMENIDINE           (RILMENIDINE) [Concomitant]
  10. PRAZOSIN GITS [Concomitant]
  11. NIFEDIPINE [Concomitant]
  12. CELLCEPT [Concomitant]
  13. METHYLPREDNISOLONE [Concomitant]
  14. RAPAMUNE [Concomitant]

REACTIONS (1)
  - SEROMA [None]
